FAERS Safety Report 8332726-1 (Version None)
Quarter: 2012Q2

REPORT INFORMATION
  Report Type: 
  Country: None (occurrence: None)
  Receive Date: 20120503
  Receipt Date: 20120418
  Transmission Date: 20120825
  Serious: Yes (Hospitalization, Other)
  Sender: FDA-Public Use
  Company Number: CN-JNJFOC-20110405573

PATIENT
  Age: 40 Year
  Sex: Male
  Weight: 60 kg

DRUGS (3)
  1. NIZORAL [Suspect]
     Route: 048
     Dates: start: 20110301, end: 20110321
  2. NIZORAL [Suspect]
     Indication: ONYCHOMYCOSIS
     Route: 048
     Dates: start: 20110101
  3. NIZORAL [Suspect]
     Route: 048
     Dates: start: 20101221

REACTIONS (3)
  - SEXUAL DYSFUNCTION [None]
  - INTENTIONAL DRUG MISUSE [None]
  - PRIAPISM [None]
